FAERS Safety Report 5528899-6 (Version None)
Quarter: 2007Q4

REPORT INFORMATION
  Report Type: 
  Country: None (occurrence: None)
  Receive Date: 20071126
  Receipt Date: 20071026
  Transmission Date: 20080405
  Serious: Yes (Other)
  Sender: FDA-Public Use
  Company Number: FRPFM-L-20070017

PATIENT
  Age: 3 Week
  Sex: Female

DRUGS (3)
  1. NAVELBINE [Suspect]
  2. FLUOROURACIL [Suspect]
  3. EPIRUBICIN [Suspect]

REACTIONS (4)
  - ANAEMIA NEONATAL [None]
  - CAESAREAN SECTION [None]
  - DRUG EXPOSURE DURING PREGNANCY [None]
  - PREMATURE BABY [None]
